FAERS Safety Report 15860039 (Version 2)
Quarter: 2019Q1

REPORT INFORMATION
  Report Type: Report from Study
  Country: US (occurrence: US)
  Receive Date: 20190123
  Receipt Date: 20190213
  Transmission Date: 20190417
  Serious: Yes (Other)
  Sender: FDA-Public Use
  Company Number: US-BAUSCH-BL-2019-000384

PATIENT
  Sex: Male

DRUGS (2)
  1. SILIQ [Suspect]
     Active Substance: BRODALUMAB
     Dosage: 210 MG/1.5 ML; SOSY AT WEEK 0,1/T/2 AS DIRECTED
     Route: 058
  2. SILIQ [Suspect]
     Active Substance: BRODALUMAB
     Indication: PRODUCT USED FOR UNKNOWN INDICATION
     Dosage: 210 MG/1.5 ML; SOSY (PRE-FILLED SYRINGE) AT WEEK 0,1/T/2 AS DIRECTED
     Route: 058

REACTIONS (4)
  - Tympanic membrane perforation [Unknown]
  - Malaise [Unknown]
  - Ear infection [Unknown]
  - Sinusitis [Unknown]

NARRATIVE: CASE EVENT DATE: 2018
